FAERS Safety Report 4608858-8 (Version None)
Quarter: 2005Q1

REPORT INFORMATION
  Report Type: 
  Country: None (occurrence: None)
  Receive Date: 20050311
  Receipt Date: 20050307
  Transmission Date: 20050727
  Serious: Yes (Other)
  Sender: FDA-Public Use
  Company Number: 2005020016

PATIENT
  Age: 78 Year
  Sex: Male

DRUGS (6)
  1. LIPITOR [Suspect]
     Indication: HYPERLIPIDAEMIA
     Dosage: 10 MG (10 MG, 1 IN 1 D), ORAL
     Route: 048
     Dates: start: 20041201, end: 20050124
  2. ISOSORBIDE MONONITRATE [Concomitant]
  3. INSULIN INJECTION, BIPHASIC (INSULIN INJECTION, BIPHASIC) [Concomitant]
  4. EPALRESTAT (EPALRESTAT) [Concomitant]
  5. ASPIRIN [Concomitant]
  6. ALLOPURINOL [Concomitant]

REACTIONS (2)
  - RENAL DISORDER [None]
  - RHABDOMYOLYSIS [None]
